FAERS Safety Report 19488676 (Version 8)
Quarter: 2021Q3

REPORT INFORMATION
  Report Type: Report from Study
  Country: US (occurrence: US)
  Receive Date: 20210702
  Receipt Date: 20210929
  Transmission Date: 20211014
  Serious: Yes (Other)
  Sender: FDA-Public Use
  Company Number: NVSC2021US141082

PATIENT
  Sex: Male

DRUGS (4)
  1. ENTRESTO [Suspect]
     Active Substance: SACUBITRIL\VALSARTAN
     Dosage: 50 MG, (24/26 MG)
     Route: 048
     Dates: start: 20210524
  2. FUROSEMIDE. [Suspect]
     Active Substance: FUROSEMIDE
     Indication: PRODUCT USED FOR UNKNOWN INDICATION
     Dosage: UNK UNK, PRN (AS NEEDED)
     Route: 065
  3. SPIRONOLACTONE. [Concomitant]
     Active Substance: SPIRONOLACTONE
     Indication: PRODUCT USED FOR UNKNOWN INDICATION
     Dosage: UNK UNK, PRN (AS NEEDED)
     Route: 065
  4. ENTRESTO [Suspect]
     Active Substance: SACUBITRIL\VALSARTAN
     Indication: PRODUCT USED FOR UNKNOWN INDICATION
     Dosage: 50 MG, (24/26 MG)
     Route: 065

REACTIONS (8)
  - Weight decreased [Unknown]
  - Pacemaker generated arrhythmia [Unknown]
  - Atrial fibrillation [Unknown]
  - Syncope [Unknown]
  - Nephrolithiasis [Unknown]
  - Renal impairment [Unknown]
  - Cerebrovascular accident [Unknown]
  - Psychogenic seizure [Unknown]
